FAERS Safety Report 5740112-3 (Version None)
Quarter: 2008Q2

REPORT INFORMATION
  Report Type: 
  Country: None (occurrence: None)
  Receive Date: 20080513
  Receipt Date: 20080428
  Transmission Date: 20081010
  Serious: Yes (Hospitalization)
  Sender: FDA-Public Use
  Company Number: 2008S1006276

PATIENT
  Age: 59 Year
  Sex: Male

DRUGS (3)
  1. OMEPRAZOLE [Suspect]
     Indication: DRUG USE FOR UNKNOWN INDICATION
  2. PHENYTOIN [Suspect]
     Indication: EPILEPSY
     Dosage: 300 MG; DAILY;
  3. VITAMIN B COMPLEX /00003501/ [Concomitant]

REACTIONS (8)
  - ALCOHOL POISONING [None]
  - ANTICONVULSANT DRUG LEVEL ABOVE THERAPEUTIC [None]
  - ATAXIA [None]
  - CEREBELLAR SYNDROME [None]
  - DEPRESSED LEVEL OF CONSCIOUSNESS [None]
  - DRUG INTERACTION [None]
  - DYSARTHRIA [None]
  - NYSTAGMUS [None]
